FAERS Safety Report 15060045 (Version 1)
Quarter: 2018Q2

REPORT INFORMATION
  Report Type: Spontaneous
  Country: US (occurrence: US)
  Receive Date: 20180605
  Receipt Date: 20180605
  Transmission Date: 20180711
  Serious: Yes (Hospitalization, Other)
  Sender: FDA-Public Use
  Company Number: None

PATIENT
  Age: 63 Year
  Sex: Male

DRUGS (14)
  1. ACITRETIN. [Concomitant]
     Active Substance: ACITRETIN
  2. NOVOLOG [Concomitant]
     Active Substance: INSULIN ASPART
  3. PLAVIX [Concomitant]
     Active Substance: CLOPIDOGREL BISULFATE
  4. BUMEX [Concomitant]
     Active Substance: BUMETANIDE
  5. MULTI-VITAMIN [Concomitant]
     Active Substance: .ALPHA.-TOCOPHEROL ACETATE, DL-\ASCORBIC ACID\CYANOCOBALAMIN\FLUORIDE ION\FOLIC ACID\NIACIN\PYRIDOXINE\RIBOFLAVIN\THIAMINE\VITAMIN A\VITAMIN D
  6. REGLAN [Concomitant]
     Active Substance: METOCLOPRAMIDE HYDROCHLORIDE
  7. PREDNISONE. [Concomitant]
     Active Substance: PREDNISONE
  8. RANEXA [Concomitant]
     Active Substance: RANOLAZINE
  9. AZATHIOPRINE. [Suspect]
     Active Substance: AZATHIOPRINE
     Indication: RENAL TRANSPLANT
     Route: 048
     Dates: start: 20130806
  10. GARLIC. [Concomitant]
     Active Substance: GARLIC
  11. LOPRESSOR [Concomitant]
     Active Substance: METOPROLOL TARTRATE
  12. NIACINAMIDE [Concomitant]
     Active Substance: NIACINAMIDE
  13. ZETIA [Concomitant]
     Active Substance: EZETIMIBE
  14. PROTONIX [Concomitant]
     Active Substance: PANTOPRAZOLE SODIUM

REACTIONS (3)
  - Drug dose omission [None]
  - Infection [None]
  - Skin cancer [None]

NARRATIVE: CASE EVENT DATE: 20180501
